FAERS Safety Report 16283328 (Version 1)
Quarter: 2019Q2

REPORT INFORMATION
  Report Type: Spontaneous
  Country: FR (occurrence: FR)
  Receive Date: 20190507
  Receipt Date: 20190507
  Transmission Date: 20190711
  Serious: Yes (Hospitalization, Other)
  Sender: FDA-Public Use
  Company Number: FR-MYLANLABS-2019M1043365

PATIENT
  Age: 75 Year
  Sex: Male
  Weight: 72 kg

DRUGS (8)
  1. ROSUVASTATINE                      /01588601/ [Concomitant]
     Active Substance: ROSUVASTATIN
  2. KARDEGIC [Suspect]
     Active Substance: ASPIRIN DL-LYSINE
     Indication: PERIPHERAL ARTERY BYPASS
     Dosage: 1 DOSAGE FORM, QD
     Route: 048
     Dates: start: 2011, end: 20190407
  3. GAVISCON                           /00237601/ [Concomitant]
     Active Substance: ALUMINUM HYDROXIDE\MAGNESIUM CARBONATE
  4. ARIXTRA [Suspect]
     Active Substance: FONDAPARINUX SODIUM
     Indication: EMBOLISM
     Dosage: 1 DOSAGE FORM, QD
     Route: 058
     Dates: start: 20190108, end: 20190407
  5. ACIDE FOLIQUE [Concomitant]
     Active Substance: FOLIC ACID
  6. DOLIPRANE [Concomitant]
     Active Substance: ACETAMINOPHEN
  7. LYRICA [Concomitant]
     Active Substance: PREGABALIN
  8. LAROXYL [Concomitant]
     Active Substance: AMITRIPTYLINE HYDROCHLORIDE

REACTIONS (2)
  - Product use issue [Unknown]
  - Intracranial haematoma [Recovered/Resolved]

NARRATIVE: CASE EVENT DATE: 20190108
